FAERS Safety Report 16327658 (Version 1)
Quarter: 2019Q2

REPORT INFORMATION
  Report Type: Spontaneous
  Country: CA (occurrence: CA)
  Receive Date: 20190517
  Receipt Date: 20190517
  Transmission Date: 20190711
  Serious: Yes (Other)
  Sender: FDA-Public Use
  Company Number: CA-TEVA-2019-CA-1050167

PATIENT
  Age: 69 Year
  Sex: Female

DRUGS (6)
  1. CALCIUM [Concomitant]
     Active Substance: CALCIUM
  2. ANASTROZOLE. [Suspect]
     Active Substance: ANASTROZOLE
     Indication: BREAST CANCER METASTATIC
     Route: 048
  3. IBRANCE [Concomitant]
     Active Substance: PALBOCICLIB
  4. LETROZOLE. [Concomitant]
     Active Substance: LETROZOLE
  5. VITAMINS NOS [Concomitant]
     Active Substance: VITAMINS
  6. ZOLEDRONIC ACID [Concomitant]
     Active Substance: ZOLEDRONIC ACID

REACTIONS (6)
  - Papilloedema [Unknown]
  - Subclavian vein thrombosis [Unknown]
  - Jugular vein thrombosis [Unknown]
  - Malignant neoplasm progression [Unknown]
  - Skin reaction [Unknown]
  - Weight increased [Unknown]
